FAERS Safety Report 7308653-5 (Version None)
Quarter: 2011Q1

REPORT INFORMATION
  Report Type: 
  Country: None (occurrence: None)
  Receive Date: 20110223
  Receipt Date: 20110215
  Transmission Date: 20110831
  Serious: Yes (Other)
  Sender: FDA-Public Use
  Company Number: US-MERCK-0901USA03025

PATIENT
  Age: 58 Year
  Sex: Female

DRUGS (1)
  1. FOSAMAX [Suspect]
     Indication: OSTEOPOROSIS
     Route: 048
     Dates: start: 19970801, end: 20060401

REACTIONS (15)
  - ARTHRITIS [None]
  - COSTOCHONDRITIS [None]
  - FALL [None]
  - STOMATITIS [None]
  - TOOTH FRACTURE [None]
  - GINGIVAL SWELLING [None]
  - GAIT DISTURBANCE [None]
  - MUSCULOSKELETAL CHEST PAIN [None]
  - PAIN [None]
  - MOUTH ULCERATION [None]
  - BLOOD CHOLESTEROL INCREASED [None]
  - OSTEONECROSIS OF JAW [None]
  - HYPERTENSION [None]
  - DERMATITIS ALLERGIC [None]
  - BONE DENSITY DECREASED [None]
